FAERS Safety Report 6749188-8 (Version None)
Quarter: 2010Q2

REPORT INFORMATION
  Report Type: 
  Country: None (occurrence: None)
  Receive Date: 20100601
  Receipt Date: 20100521
  Transmission Date: 20101027
  Serious: Yes (Other)
  Sender: FDA-Public Use
  Company Number: CL-JNJFOC-20100503888

PATIENT
  Sex: Female
  Weight: 65 kg

DRUGS (16)
  1. GOLIMUMAB [Suspect]
     Indication: RHEUMATOID ARTHRITIS
     Route: 058
  2. GOLIMUMAB [Suspect]
     Route: 058
  3. GOLIMUMAB [Suspect]
     Route: 058
  4. PLACEBO [Suspect]
     Indication: RHEUMATOID ARTHRITIS
     Route: 058
  5. METHOTREXATE [Suspect]
     Indication: RHEUMATOID ARTHRITIS
     Route: 048
  6. METHOTREXATE [Suspect]
     Route: 048
  7. METHOTREXATE [Concomitant]
     Route: 048
  8. DOLOSPAM [Concomitant]
     Route: 048
  9. PARACETAMOL [Concomitant]
     Route: 048
  10. PREDNISONE TAB [Concomitant]
     Route: 048
  11. ENALAPRIL [Concomitant]
     Route: 048
  12. FOLIC ACID [Concomitant]
     Route: 048
  13. PARACETAMOL [Concomitant]
     Route: 048
  14. ASPIRIN [Concomitant]
     Route: 048
  15. SERTRALINE HCL [Concomitant]
     Route: 048
  16. CYCLOBENZAPRINE [Concomitant]
     Route: 048

REACTIONS (1)
  - BREAST CALCIFICATIONS [None]
